FAERS Safety Report 18477120 (Version 3)
Quarter: 2021Q1

REPORT INFORMATION
  Report Type: Report from Study
  Country: US (occurrence: US)
  Receive Date: 20201107
  Receipt Date: 20210121
  Transmission Date: 20210419
  Serious: Yes (Life-Threatening, Hospitalization)
  Sender: FDA-Public Use
  Company Number: US-TAKEDA-US201921431

PATIENT
  Age: 55 Year
  Sex: Female
  Weight: 61 kg

DRUGS (16)
  1. TEDUGLUTIDE [Suspect]
     Active Substance: TEDUGLUTIDE
     Indication: SHORT-BOWEL SYNDROME
     Dosage: STUDY DRUG WAS NOT ADMINISTERED
     Route: 065
  2. PENLAC [Concomitant]
     Active Substance: CICLOPIROX
     Indication: SHORT-BOWEL SYNDROME
  3. BACTRIM DS [Concomitant]
     Active Substance: SULFAMETHOXAZOLE\TRIMETHOPRIM
     Indication: SHORT-BOWEL SYNDROME
  4. BACLOFEN. [Concomitant]
     Active Substance: BACLOFEN
     Indication: CATHETER REMOVAL
     Dosage: 10 MILLIGRAM, TID
     Route: 048
     Dates: start: 20180830, end: 20180920
  5. TEDUGLUTIDE [Suspect]
     Active Substance: TEDUGLUTIDE
     Indication: SHORT-BOWEL SYNDROME
     Dosage: STUDY DRUG WAS NOT ADMINISTERED
     Route: 065
  6. PERCOCET [OXYCODONE HYDROCHLORIDE;OXYCODONE TEREPHTHALATE;PARACETAMOL] [Concomitant]
     Active Substance: ACETAMINOPHEN\OXYCODONE HYDROCHLORIDE\OXYCODONE TEREPHTHALATE
     Indication: ENTEROCUTANEOUS FISTULA
  7. AMPICILLIN [Concomitant]
     Active Substance: AMPICILLIN
     Indication: SHORT-BOWEL SYNDROME
  8. LYRICA [Concomitant]
     Active Substance: PREGABALIN
     Indication: ENTEROCUTANEOUS FISTULA
  9. PROTONIX [Concomitant]
     Active Substance: PANTOPRAZOLE SODIUM
     Indication: SHORT-BOWEL SYNDROME
  10. SUBUTEX [Concomitant]
     Active Substance: BUPRENORPHINE HYDROCHLORIDE
     Indication: SHORT-BOWEL SYNDROME
  11. ACETAMINOPHEN. [Concomitant]
     Active Substance: ACETAMINOPHEN
     Indication: PAIN
     Dosage: 850 MILLIGRAM, PRN
     Route: 042
     Dates: start: 20180830, end: 20180905
  12. OXYCODONE;PARACETAMOL [Concomitant]
     Active Substance: ACETAMINOPHEN\OXYCODONE HYDROCHLORIDE
     Indication: PAIN
     Dosage: UNK UNK, PRN
     Route: 048
     Dates: start: 20180908, end: 20140914
  13. TEDUGLUTIDE [Suspect]
     Active Substance: TEDUGLUTIDE
     Indication: SHORT-BOWEL SYNDROME
     Dosage: STUDY DRUG WAS NOT ADMINISTERED
     Route: 065
  14. SEPTRA DS [Concomitant]
     Active Substance: SULFAMETHOXAZOLE\TRIMETHOPRIM
     Indication: SHORT-BOWEL SYNDROME
  15. SODIUM CHLORIDE. [Concomitant]
     Active Substance: SODIUM CHLORIDE
     Indication: CATHETER MANAGEMENT
     Dosage: UNK UNK, SINGLE
     Route: 042
     Dates: start: 20180830, end: 20180830
  16. TEDUGLUTIDE [Suspect]
     Active Substance: TEDUGLUTIDE
     Indication: SHORT-BOWEL SYNDROME
     Dosage: STUDY DRUG WAS NOT ADMINISTERED
     Route: 065

REACTIONS (3)
  - Candida infection [Recovered/Resolved]
  - Sepsis [Not Recovered/Not Resolved]
  - Bacteraemia [Recovered/Resolved]

NARRATIVE: CASE EVENT DATE: 20180830
